FAERS Safety Report 5249149-4 (Version None)
Quarter: 2007Q1

REPORT INFORMATION
  Report Type: 
  Country: None (occurrence: None)
  Receive Date: 20070223
  Receipt Date: 20070216
  Transmission Date: 20070707
  Serious: Yes (Death)
  Sender: FDA-Public Use
  Company Number: 2007-00278

PATIENT
  Age: 58 Year
  Sex: Female

DRUGS (6)
  1. VELCADE [Suspect]
     Indication: MULTIPLE MYELOMA
     Dosage: 1.30 MG/M2,
     Dates: start: 20070110, end: 20070119
  2. BAKTAR (SULFAMETHOXAZOLE, TRIMETHOPRIM) [Concomitant]
  3. MAGNESIUM OXIDE (MAGNESIUM OXIDE) [Concomitant]
  4. FENTANYL [Concomitant]
  5. EBRANTIL (URAPIDIL) [Concomitant]
  6. BESACOLIN (BETHANECHOL CHLORIDE) [Concomitant]

REACTIONS (13)
  - ANAEMIA [None]
  - BLOOD CREATININE INCREASED [None]
  - BRONCHITIS [None]
  - CAROTID BRUIT [None]
  - DEHYDRATION [None]
  - DIARRHOEA [None]
  - DISEASE PROGRESSION [None]
  - INCREASED VISCOSITY OF BRONCHIAL SECRETION [None]
  - INJURY ASPHYXIATION [None]
  - NEUROPATHY PERIPHERAL [None]
  - OBSTRUCTIVE AIRWAYS DISORDER [None]
  - RESPIRATORY ARREST [None]
  - VIRAL UPPER RESPIRATORY TRACT INFECTION [None]
